FAERS Safety Report 5299131-6 (Version None)
Quarter: 2007Q2

REPORT INFORMATION
  Report Type: 
  Country: None (occurrence: None)
  Receive Date: 20070417
  Receipt Date: 20070411
  Transmission Date: 20071010
  Serious: Yes (Life-Threatening)
  Sender: FDA-Public Use
  Company Number: NL-BAYER-200712083GDS

PATIENT
  Age: 36 Year
  Sex: Male
  Weight: 91 kg

DRUGS (3)
  1. CIPROFLOXACIN HYDROCHLORIDE [Suspect]
     Indication: CHOLANGITIS
     Dosage: UNIT DOSE: 200 MG
     Route: 048
     Dates: start: 20070401, end: 20070404
  2. DEPAKENE [Concomitant]
     Indication: DRUG USE FOR UNKNOWN INDICATION
     Dosage: UNIT DOSE: 250 MG
     Route: 048
     Dates: start: 19850101
  3. URSODIOL [Concomitant]
     Indication: DRUG USE FOR UNKNOWN INDICATION
     Dosage: UNIT DOSE: 300 MG
     Route: 048
     Dates: start: 20050901

REACTIONS (2)
  - HYPERHIDROSIS [None]
  - TORSADE DE POINTES [None]
